FAERS Safety Report 21687542 (Version 1)
Quarter: 2022Q4

REPORT INFORMATION
  Report Type: Spontaneous
  Country: FR (occurrence: FR)
  Receive Date: 20221206
  Receipt Date: 20221206
  Transmission Date: 20230113
  Serious: Yes (Other)
  Sender: FDA-Public Use
  Company Number: FR-CHEPLA-C20201236

PATIENT
  Age: 22 Year
  Sex: Female

DRUGS (10)
  1. ARSENIC [Suspect]
     Active Substance: ARSENIC
     Indication: Acute promyelocytic leukaemia
     Dosage: 0.15 MILLIGRAM/KILOGRAM, QD, CONSOLIDATION TREATMENT N2
     Route: 065
     Dates: start: 20180709, end: 20180805
  2. ARSENIC [Suspect]
     Active Substance: ARSENIC
     Dosage: 0.15 MILLIGRAM/KILOGRAM, QD, CONSOLIDATION TREATMENT N1
     Route: 065
     Dates: start: 20180514, end: 20180610
  3. ARSENIC [Suspect]
     Active Substance: ARSENIC
     Dosage: 0.15 MILLIGRAM/KILOGRAM, INDUCTION TREATMENT
     Route: 065
     Dates: start: 20180321, end: 20180418
  4. ARSENIC [Suspect]
     Active Substance: ARSENIC
     Dosage: 15 MILLIGRAM/KILOGRAM, QD (4 CYCLES OF 4 WEEKS EACH 8 WEEKS)
     Route: 065
     Dates: start: 2018
  5. DEXAMETHASONE [Suspect]
     Active Substance: DEXAMETHASONE
     Indication: Differentiation syndrome
     Dosage: 20 MILLIGRAM, QD
     Route: 065
     Dates: start: 20180321, end: 20180418
  6. DEXAMETHASONE [Suspect]
     Active Substance: DEXAMETHASONE
     Indication: Prophylaxis
     Dosage: 10 MILLIGRAM
     Route: 065
     Dates: start: 2018
  7. TRETINOIN [Suspect]
     Active Substance: TRETINOIN
     Indication: Acute promyelocytic leukaemia
     Dosage: 45 MILLIGRAM/SQ. METER, QD, INDUCTION TREATMENT
     Route: 048
     Dates: start: 20180317, end: 20180418
  8. TRETINOIN [Suspect]
     Active Substance: TRETINOIN
     Dosage: 45 MILLIGRAM/SQ. METER, QD (7 CYCLES OF 2 WEEKS EACH 4 WEEKS)
     Route: 048
     Dates: start: 2018
  9. HEPARIN [Suspect]
     Active Substance: HEPARIN SODIUM
     Indication: Thrombosis
     Dosage: 50 INTERNATIONAL UNIT/KILOGRAM
     Route: 065
     Dates: start: 20180321, end: 20180418
  10. HEPARIN [Suspect]
     Active Substance: HEPARIN SODIUM
     Indication: Prophylaxis
     Dosage: 50 INTERNATIONAL UNIT/KILOGRAM
     Route: 065
     Dates: start: 2018

REACTIONS (2)
  - Maternal exposure during pregnancy [Recovered/Resolved]
  - Normal newborn [Recovered/Resolved]

NARRATIVE: CASE EVENT DATE: 20180101
